FAERS Safety Report 5025717-X (Version None)
Quarter: 2006Q2

REPORT INFORMATION
  Report Type: 
  Country: None (occurrence: None)
  Receive Date: 20060608
  Receipt Date: 19961002
  Transmission Date: 20061013
  Serious: Yes (Hospitalization)
  Sender: FDA-Public Use
  Company Number: 96-09-0488

PATIENT
  Sex: Male

DRUGS (10)
  1. ETHYOL [Suspect]
     Indication: ADVERSE DRUG REACTION
     Dosage: INTRAVENOUS
     Route: 042
     Dates: start: 19960821, end: 19960821
  2. FLUOROURACIL [Suspect]
     Indication: NEOPLASM MALIGNANT
     Dosage: INTRAVENOUS
     Route: 042
     Dates: start: 19960819, end: 19960821
  3. CISPLATIN [Suspect]
     Indication: NEOPLASM
     Dosage: INTRAVENOUS
     Route: 042
  4. COUMADIN [Concomitant]
  5. LANOXIN [Concomitant]
  6. MICRO-K [Concomitant]
  7. ALLOPURINOL [Concomitant]
  8. ATIVAN [Concomitant]
  9. DECADRON [Concomitant]
  10. KYTRIL [Concomitant]

REACTIONS (7)
  - ABDOMINAL PAIN UPPER [None]
  - FEELING HOT [None]
  - HYPERHIDROSIS [None]
  - HYPOTENSION [None]
  - NAUSEA [None]
  - PALLOR [None]
  - VOMITING [None]
